FAERS Safety Report 7370195-9 (Version None)
Quarter: 2011Q1

REPORT INFORMATION
  Report Type: 
  Country: None (occurrence: None)
  Receive Date: 20110323
  Receipt Date: 20110106
  Transmission Date: 20110831
  Serious: No
  Sender: FDA-Public Use
  Company Number: US-ASTRAZENECA-2011SE00827

PATIENT
  Age: 51 Year
  Sex: Male
  Weight: 95.3 kg

DRUGS (4)
  1. ZESTRIL [Suspect]
     Indication: HYPERTENSION
     Route: 048
     Dates: start: 20101201
  2. IBUPROFEN [Concomitant]
  3. RELAFEN [Concomitant]
  4. ACETAMINOPHEN [Concomitant]

REACTIONS (1)
  - SEXUAL DYSFUNCTION [None]
